FAERS Safety Report 18940799 (Version 2)
Quarter: 2021Q1

REPORT INFORMATION
  Report Type: Spontaneous
  Country: US (occurrence: US)
  Receive Date: 20210225
  Receipt Date: 20210316
  Transmission Date: 20210420
  Serious: Yes (Other)
  Sender: FDA-Public Use
  Company Number: US-BOIRON INC.-2021BOR00020

PATIENT
  Sex: Female
  Weight: 74.83 kg

DRUGS (2)
  1. QUIETUDE [HOMEOPATHICS] [Suspect]
     Active Substance: HOMEOPATHICS
     Indication: SLEEP DISORDER
     Dosage: ^RECOMMENDED DOSAGE^ (NEVER EXCEEDED 4 TABLETS), EVERY NIGHT
     Route: 048
     Dates: start: 2012, end: 2014
  2. QUIETUDE [HOMEOPATHICS] [Suspect]
     Active Substance: HOMEOPATHICS
     Dosage: ^RECOMMENDED DOSAGE^ (NEVER EXCEEDED 4 TABLETS), EVERY NIGHT
     Route: 048
     Dates: start: 2019, end: 2019

REACTIONS (4)
  - Hallucination, visual [Recovered/Resolved]
  - Nausea [Recovered/Resolved]
  - Impaired driving ability [Recovered/Resolved]
  - Drug ineffective [Recovered/Resolved]

NARRATIVE: CASE EVENT DATE: 2013
